FAERS Safety Report 15751266 (Version 3)
Quarter: 2020Q4

REPORT INFORMATION
  Report Type: Spontaneous
  Country: US (occurrence: US)
  Receive Date: 20181221
  Receipt Date: 20201210
  Transmission Date: 20210113
  Serious: Yes (Other)
  Sender: FDA-Public Use
  Company Number: US-PFIZER INC-2018518234

PATIENT
  Sex: Female
  Weight: 84 kg

DRUGS (4)
  1. ATENOLOL. [Suspect]
     Active Substance: ATENOLOL
     Indication: HYPERTROPHIC CARDIOMYOPATHY
     Dosage: 50 MG, 2X/DAY
     Route: 048
     Dates: end: 2020
  2. NORPACE CR [Suspect]
     Active Substance: DISOPYRAMIDE PHOSPHATE
     Dosage: UNK
  3. NORPACE [Suspect]
     Active Substance: DISOPYRAMIDE PHOSPHATE
     Indication: HYPERTROPHIC CARDIOMYOPATHY
     Dosage: 600 MG, DAILY
     Route: 048
  4. NORPACE [Suspect]
     Active Substance: DISOPYRAMIDE PHOSPHATE
     Dosage: UNK, AS NEEDED (2-100MG CAPSULES TAKEN DAILY, WITH 3RD CAPSULE TAKEN AS NEEDED)

REACTIONS (2)
  - Neuropathy peripheral [Not Recovered/Not Resolved]
  - Balance disorder [Unknown]
